FAERS Safety Report 6304589 (Version 8)
Quarter: 2015Q1

REPORT INFORMATION
  Report Type: Spontaneous
  Country: FR (occurrence: FR)
  Receive Date: 20070504
  Receipt Date: 20150209
  Transmission Date: 20150721
  Serious: Yes (Hospitalization, Disabling, Other)
  Sender: FDA-Public Use
  Company Number: FR-BAYER-200710295BFR

PATIENT
  Age: 19 Year
  Sex: Male
  Weight: 65 kg

DRUGS (4)
  1. IZILOX [Suspect]
     Active Substance: MOXIFLOXACIN HYDROCHLORIDE
     Indication: ACUTE SINUSITIS
     Dosage: 400 MG (DAILY DOSE), QD, ORAL
     Route: 048
     Dates: start: 20061208, end: 20061213
  2. CELESTENE [Suspect]
     Active Substance: BETAMETHASONE
     Indication: ACUTE SINUSITIS
     Dosage: 6 MG, QD
     Route: 048
     Dates: start: 20061201, end: 20061213
  3. DERINOX [NAPHAZOLINE NITRATE,PHENYLEPHRINE HYDROCHLORIDE,PREDNISOL [Concomitant]
     Indication: ACUTE SINUSITIS
     Dates: start: 200612
  4. AUGMENTIN [Concomitant]
     Active Substance: AMOXICILLIN\CLAVULANATE POTASSIUM
     Indication: ACUTE SINUSITIS
     Dates: start: 200612, end: 200612

REACTIONS (3)
  - Osteonecrosis [Not Recovered/Not Resolved]
  - Arthralgia [Recovered/Resolved]
  - Bone infarction [Not Recovered/Not Resolved]

NARRATIVE: CASE EVENT DATE: 20061213
